FAERS Safety Report 4815563-1 (Version None)
Quarter: 2005Q4

REPORT INFORMATION
  Report Type: 
  Country: None (occurrence: None)
  Receive Date: 20051027
  Receipt Date: 20051013
  Transmission Date: 20060501
  Serious: Yes (Hospitalization)
  Sender: FDA-Public Use
  Company Number: HQWYE998113OCT05

PATIENT
  Age: 67 Year
  Sex: Female

DRUGS (6)
  1. AVLOCARDYL LP (PROPRANOLOL HYDROCHLORIDE, CAPSULE, EXTENDED RELEASE) [Suspect]
     Dosage: 160 MG 1X PER 1 DAY ORAL
     Route: 048
     Dates: start: 20010101
  2. ALDALIX (FUROSEMIDE/SPIRONOLACTONE,) [Suspect]
     Dosage: 50 + 20 MG QD ORAL
     Route: 048
     Dates: start: 20010101
  3. DAFLON (DIOSMIN,) [Suspect]
     Dosage: 0.5 DOSAGE FORM 1X PER 1 DAY ORAL
     Route: 048
     Dates: start: 20050101
  4. PREVISCAN (FLUINDIONE,) [Suspect]
     Dosage: 0.5 DOSAGE FORM 1X PER 1 DAY ORAL
     Route: 048
     Dates: start: 20010101
  5. SPASFON (PHLOROGLUCINOL/TRIMETHYLPHLOROGLUCINOL,) [Suspect]
     Dosage: ORAL
     Route: 048
     Dates: start: 20010101
  6. XANAX [Suspect]
     Dosage: 0.5 MG 1X PER 1 DAY ORAL
     Route: 048
     Dates: start: 20050101

REACTIONS (7)
  - BLOOD IMMUNOGLOBULIN G INCREASED [None]
  - C-REACTIVE PROTEIN INCREASED [None]
  - CUTANEOUS VASCULITIS [None]
  - CYTOMEGALOVIRUS TEST POSITIVE [None]
  - HAEMATURIA [None]
  - RED BLOOD CELL SEDIMENTATION RATE INCREASED [None]
  - VASCULAR PURPURA [None]
